FAERS Safety Report 5541644-3 (Version None)
Quarter: 2007Q4

REPORT INFORMATION
  Report Type: 
  Country: None (occurrence: None)
  Receive Date: 20071210
  Receipt Date: 20071126
  Transmission Date: 20080405
  Serious: Yes (Hospitalization, Other)
  Sender: FDA-Public Use
  Company Number: US-AMGEN-QUU254040

PATIENT
  Sex: Female

DRUGS (6)
  1. NEULASTA [Suspect]
     Indication: CHEMOTHERAPY
     Route: 058
     Dates: start: 20071101
  2. RITUXIMAB [Concomitant]
     Dates: start: 20071101
  3. CYCLOPHOSPHAMIDE [Concomitant]
     Dates: start: 20071101
  4. PREDNISONE TAB [Concomitant]
     Dates: start: 20071101
  5. VINCRISTINE [Concomitant]
     Dates: start: 20071101
  6. DOXORUBICIN HYDROCHLORIDE [Concomitant]
     Dates: start: 20071101

REACTIONS (5)
  - BAND NEUTROPHIL COUNT INCREASED [None]
  - BONE PAIN [None]
  - CACHEXIA [None]
  - FUNGAL INFECTION [None]
  - WHITE BLOOD CELL DISORDER [None]
